FAERS Safety Report 26180300 (Version 1)
Quarter: 2025Q4

REPORT INFORMATION
  Report Type: Spontaneous
  Country: EU (occurrence: EU)
  Receive Date: 20251219
  Receipt Date: 20251219
  Transmission Date: 20260118
  Serious: Yes (Hospitalization, Other)
  Sender: PFIZER
  Company Number: EU-SANDOZ-SDZ2025DE092377

PATIENT
  Sex: Female

DRUGS (6)
  1. METHOTREXATE SODIUM [Suspect]
     Active Substance: METHOTREXATE SODIUM
     Dosage: 20 MG
     Route: 065
     Dates: start: 20210901
  2. RITUXIMAB [Suspect]
     Active Substance: RITUXIMAB
     Dosage: 1000 MG
     Route: 065
  3. ETORICOXIB [Suspect]
     Active Substance: ETORICOXIB
     Dosage: 90 MG
     Route: 065
     Dates: start: 20240401
  4. ETORICOXIB [Suspect]
     Active Substance: ETORICOXIB
     Dosage: 90 MG
     Route: 065
     Dates: start: 20241115
  5. COSENTYX [Suspect]
     Active Substance: SECUKINUMAB
     Dosage: 150 MG
     Route: 065
     Dates: start: 20241114
  6. COSENTYX [Suspect]
     Active Substance: SECUKINUMAB
     Dosage: 150 MG
     Route: 065
     Dates: start: 20241114, end: 20250102

REACTIONS (3)
  - Psoriatic arthropathy [Unknown]
  - Fibromyalgia [Unknown]
  - Rheumatoid arthritis [Unknown]

NARRATIVE: CASE EVENT DATE: 20250218
